FAERS Safety Report 9969575 (Version 1)
Quarter: 2014Q1

REPORT INFORMATION
  Report Type: Report from Study
  Country: JP (occurrence: JP)
  Receive Date: 20140306
  Receipt Date: 20140306
  Transmission Date: 20141002
  Serious: Yes (Other)
  Sender: FDA-Public Use
  Company Number: JP-ABBVIE-14K-087-1209514-00

PATIENT
  Age: 49 Year
  Sex: Female
  Weight: 62.1 kg

DRUGS (2)
  1. LEUPRORELIN [Suspect]
     Indication: BREAST CANCER FEMALE
     Dosage: POWDER AND SOLVENT FOR PROLONGED RELEASE SUSPENSION FOR INJECTION
     Route: 058
     Dates: start: 20120712, end: 20130409
  2. TAMOXIFEN CITRATE [Concomitant]
     Indication: PRODUCT USED FOR UNKNOWN INDICATION
     Dates: start: 20100422, end: 201307

REACTIONS (1)
  - Chronic myeloid leukaemia [Recovering/Resolving]
